FAERS Safety Report 7045742-7 (Version None)
Quarter: 2010Q4

REPORT INFORMATION
  Report Type: 
  Country: None (occurrence: None)
  Receive Date: 20101014
  Receipt Date: 20101005
  Transmission Date: 20110411
  Serious: Yes (Hospitalization)
  Sender: FDA-Public Use
  Company Number: CA-MERCK-1010USA00609

PATIENT
  Age: 44 Year
  Sex: Male

DRUGS (9)
  1. ISENTRESS [Suspect]
     Route: 048
  2. BUPROPION HYDROCHLORIDE [Suspect]
     Route: 065
  3. CITALOPRAM [Suspect]
     Route: 065
  4. CLONAZEPAM [Suspect]
     Route: 065
  5. EMTRIVA [Concomitant]
     Route: 065
  6. QUETIAPINE FUMARATE [Suspect]
     Route: 065
  7. REYATAZ [Concomitant]
     Route: 065
  8. RISPERIDONE [Suspect]
     Route: 065
  9. TENOFOVIR [Concomitant]
     Route: 065

REACTIONS (7)
  - ANXIETY [None]
  - DEPRESSION [None]
  - DEPRESSION SUICIDAL [None]
  - DRUG INTERACTION [None]
  - PARANOIA [None]
  - PSYCHOTIC DISORDER [None]
  - TEARFULNESS [None]
